FAERS Safety Report 9670220 (Version 1)
Quarter: 2013Q4

REPORT INFORMATION
  Report Type: Spontaneous
  Country: GB (occurrence: GB)
  Receive Date: 20131105
  Receipt Date: 20131105
  Transmission Date: 20140711
  Serious: Yes (Disabling)
  Sender: FDA-Public Use
  Company Number: PHHY2013GB122536

PATIENT
  Age: 87 Year
  Sex: Female
  Weight: 44.45 kg

DRUGS (5)
  1. AMOXICILLIN [Suspect]
     Indication: LOWER RESPIRATORY TRACT INFECTION
     Dosage: 500 MG
     Route: 048
     Dates: start: 201201
  2. PRAVASTATIN [Concomitant]
  3. ASPIRIN [Concomitant]
  4. LOSARTAN [Concomitant]
  5. PARACETAMOL [Concomitant]

REACTIONS (4)
  - Anosmia [Not Recovered/Not Resolved]
  - Ageusia [Not Recovered/Not Resolved]
  - Diarrhoea [Not Recovered/Not Resolved]
  - Vomiting [Not Recovered/Not Resolved]
